FAERS Safety Report 10203162 (Version 1)
Quarter: 2014Q2

REPORT INFORMATION
  Report Type: Spontaneous
  Country: IT (occurrence: IT)
  Receive Date: 20140529
  Receipt Date: 20140529
  Transmission Date: 20141212
  Serious: Yes (Hospitalization, Disabling)
  Sender: FDA-Public Use
  Company Number: IT-ROCHE-1408504

PATIENT
  Age: 70 Year
  Sex: Female

DRUGS (7)
  1. LUCENTIS [Suspect]
     Indication: AGE-RELATED MACULAR DEGENERATION
     Route: 050
     Dates: start: 20100322
  2. LUCENTIS [Suspect]
     Route: 050
     Dates: start: 20120515, end: 20120515
  3. LUCENTIS [Suspect]
     Route: 050
     Dates: start: 20120608
  4. METFORMIN [Concomitant]
     Indication: DIABETES MELLITUS
     Route: 065
     Dates: start: 20110101, end: 20120608
  5. ZESTORETIC [Concomitant]
     Indication: HYPERTENSIVE CARDIOMYOPATHY
     Route: 065
     Dates: start: 20110101, end: 20120608
  6. DOXAZOSIN [Concomitant]
     Route: 048
  7. NEBILOX [Concomitant]
     Route: 048

REACTIONS (4)
  - Acute myocardial infarction [Recovered/Resolved with Sequelae]
  - Pulmonary embolism [Recovered/Resolved with Sequelae]
  - Deep vein thrombosis [Recovered/Resolved with Sequelae]
  - Embolic stroke [Recovered/Resolved with Sequelae]
